FAERS Safety Report 5569685-0 (Version None)
Quarter: 2007Q4

REPORT INFORMATION
  Report Type: 
  Country: None (occurrence: None)
  Receive Date: 20071220
  Receipt Date: 20071218
  Transmission Date: 20080405
  Serious: Yes (Other)
  Sender: FDA-Public Use
  Company Number: D0055557B

PATIENT
  Sex: Female

DRUGS (1)
  1. ELONTRIL [Suspect]
     Indication: DEPRESSION
     Route: 048

REACTIONS (1)
  - ANGINA PECTORIS [None]
